FAERS Safety Report 7373108-9 (Version None)
Quarter: 2011Q1

REPORT INFORMATION
  Report Type: 
  Country: None (occurrence: None)
  Receive Date: 20110324
  Receipt Date: 20110324
  Transmission Date: 20110831
  Serious: Yes (Death, Hospitalization, Other)
  Sender: FDA-Public Use
  Company Number: US-ABBOTT-11P-163-0705698-00

PATIENT
  Sex: Male
  Weight: 63.56 kg

DRUGS (2)
  1. HUMIRA [Suspect]
     Indication: CROHN'S DISEASE
     Route: 058
     Dates: start: 20080101, end: 20101201
  2. HUMIRA [Suspect]
     Dosage: RESTARTED LOADING DOSE
     Route: 058
     Dates: start: 20110213

REACTIONS (8)
  - ABDOMINAL PAIN [None]
  - PYREXIA [None]
  - CROHN'S DISEASE [None]
  - VOMITING [None]
  - CELLULITIS [None]
  - SEPSIS [None]
  - INTESTINAL OBSTRUCTION [None]
  - UMBILICAL HERNIA [None]
